FAERS Safety Report 14413315 (Version 1)
Quarter: 2018Q1

REPORT INFORMATION
  Report Type: Spontaneous
  Country: US (occurrence: US)
  Receive Date: 20180119
  Receipt Date: 20180119
  Transmission Date: 20180509
  Serious: Yes (Hospitalization)
  Sender: FDA-Public Use
  Company Number: None

PATIENT
  Age: 65 Year
  Sex: Male
  Weight: 79.3 kg

DRUGS (11)
  1. ZITHROMAX [Concomitant]
     Active Substance: AZITHROMYCIN DIHYDRATE
  2. GOODYS [Suspect]
     Active Substance: ACETAMINOPHEN\ASPIRIN\CAFFEINE
     Indication: PAIN
     Dosage: 4PACKS 4 X DAY PO?CHRONIC
     Route: 048
  3. TRICOR [Concomitant]
     Active Substance: FENOFIBRATE
  4. ZANTAC [Concomitant]
     Active Substance: RANITIDINE HYDROCHLORIDE
  5. ASPIRIN. [Suspect]
     Active Substance: ASPIRIN
     Dosage: CHRONIC
     Route: 048
  6. LOTENSIN [Concomitant]
     Active Substance: BENAZEPRIL HYDROCHLORIDE
  7. HYDRALAZINE [Concomitant]
     Active Substance: HYDRALAZINE HYDROCHLORIDE
  8. LOPRESSOR [Concomitant]
     Active Substance: METOPROLOL TARTRATE
  9. AMLODIPINE [Concomitant]
     Active Substance: AMLODIPINE BESYLATE
  10. ASCORBIC ACID. [Concomitant]
     Active Substance: ASCORBIC ACID
  11. TUMS [Concomitant]
     Active Substance: CALCIUM CARBONATE

REACTIONS (10)
  - Tachycardia [None]
  - Melaena [None]
  - Haemorrhagic anaemia [None]
  - Ischaemia [None]
  - Duodenal ulcer haemorrhage [None]
  - Therapy cessation [None]
  - Hypotension [None]
  - Upper gastrointestinal haemorrhage [None]
  - Respiratory failure [None]
  - Myocardial infarction [None]

NARRATIVE: CASE EVENT DATE: 20170916
